FAERS Safety Report 7194308-7 (Version None)
Quarter: 2010Q4

REPORT INFORMATION
  Report Type: 
  Country: None (occurrence: None)
  Receive Date: 20101124
  Receipt Date: 20100928
  Transmission Date: 20110411
  Serious: No
  Sender: FDA-Public Use
  Company Number: 019534

PATIENT
  Sex: Female

DRUGS (2)
  1. LACOSAMIDE [Suspect]
     Indication: CONVULSION
     Dosage: (100 MG BID ORAL) ; (200 MG BID ORAL)
     Route: 048
     Dates: start: 20100805, end: 20100926
  2. LACOSAMIDE [Suspect]
     Indication: CONVULSION
     Dosage: (100 MG BID ORAL) ; (200 MG BID ORAL)
     Route: 048
     Dates: start: 20100927

REACTIONS (1)
  - VISION BLURRED [None]
